FAERS Safety Report 11759169 (Version 1)
Quarter: 2015Q4

REPORT INFORMATION
  Report Type: Spontaneous
  Country: US (occurrence: US)
  Receive Date: 20151120
  Receipt Date: 20151120
  Transmission Date: 20160304
  Serious: No
  Sender: FDA-Public Use
  Company Number: US-JNJFOC-20151106758

PATIENT
  Sex: Female

DRUGS (2)
  1. ROGAINE [Suspect]
     Active Substance: MINOXIDIL
     Route: 061
  2. ROGAINE [Suspect]
     Active Substance: MINOXIDIL
     Indication: DIFFUSE ALOPECIA
     Route: 061

REACTIONS (3)
  - Skin burning sensation [Not Recovered/Not Resolved]
  - Skin irritation [Not Recovered/Not Resolved]
  - Product use issue [Not Recovered/Not Resolved]
